FAERS Safety Report 5567690-1 (Version None)
Quarter: 2007Q4

REPORT INFORMATION
  Report Type: 
  Country: None (occurrence: None)
  Receive Date: 20071217
  Receipt Date: 20071208
  Transmission Date: 20080405
  Serious: Yes (Other)
  Sender: FDA-Public Use
  Company Number: CHPA2007US13534

PATIENT
  Age: 5 Week
  Sex: Female
  Weight: 3.6 kg

DRUGS (1)
  1. GAS-X (NCH)(SIMETHICONE) DROPS [Suspect]
     Indication: FLATULENCE
     Dosage: 0.3 ML, 3-5 TIMES A DAY FOR ABOUT 2 WEEKS, ORAL
     Route: 048
     Dates: start: 20071101, end: 20071207

REACTIONS (1)
  - VOMITING [None]
